FAERS Safety Report 9905796 (Version 2)
Quarter: 2014Q1

REPORT INFORMATION
  Report Type: Report from Study
  Country: US (occurrence: US)
  Receive Date: 20140218
  Receipt Date: 20140228
  Transmission Date: 20141002
  Serious: Yes (Hospitalization, Other)
  Sender: FDA-Public Use
  Company Number: US-ABBVIE-14P-163-1200112-00

PATIENT
  Sex: Female
  Weight: 76.73 kg

DRUGS (8)
  1. HUMIRA [Suspect]
     Indication: RHEUMATOID ARTHRITIS
  2. KLOR-CON [Concomitant]
     Indication: BLOOD POTASSIUM
  3. HTCZ [Concomitant]
     Indication: HYPERTENSION
  4. LISINOPRIL [Concomitant]
     Indication: HYPERTENSION
  5. METOPROLOL XR [Concomitant]
     Indication: HYPERTENSION
  6. METFORMIN [Concomitant]
     Indication: DIABETES MELLITUS
  7. LEVOTHYROXINE [Concomitant]
     Indication: THYROID DISORDER
  8. LORATADIN [Concomitant]
     Indication: ASTHMA

REACTIONS (10)
  - Thyroid neoplasm [Recovered/Resolved]
  - Lung neoplasm [Unknown]
  - Chest pain [Unknown]
  - Rubber sensitivity [Unknown]
  - Injection site pruritus [Not Recovered/Not Resolved]
  - Injection site irritation [Not Recovered/Not Resolved]
  - Injection site swelling [Not Recovered/Not Resolved]
  - Sinusitis [Unknown]
  - Bronchitis [Recovered/Resolved]
  - Rhinorrhoea [Unknown]
